FAERS Safety Report 5424086-0 (Version None)
Quarter: 2007Q3

REPORT INFORMATION
  Report Type: 
  Country: None (occurrence: None)
  Receive Date: 20070731
  Receipt Date: 20070529
  Transmission Date: 20080115
  Serious: No
  Sender: FDA-Public Use
  Company Number: US200705007455

PATIENT
  Age: 68 Year
  Sex: Female

DRUGS (3)
  1. BYETTA [Suspect]
     Indication: TYPE 2 DIABETES MELLITUS
     Dosage: 5 UG, 2/D, SUBCUTANEOUS   10 UG, 2/D, SUBCUTANEOUS
     Route: 058
     Dates: start: 20070420, end: 20070520
  2. BYETTA [Suspect]
     Indication: TYPE 2 DIABETES MELLITUS
     Dosage: 5 UG, 2/D, SUBCUTANEOUS   10 UG, 2/D, SUBCUTANEOUS
     Route: 058
     Dates: start: 20070521
  3. ACTOS [Concomitant]

REACTIONS (14)
  - ACCIDENTAL OVERDOSE [None]
  - BLOOD GLUCOSE DECREASED [None]
  - DIZZINESS [None]
  - DYSGEUSIA [None]
  - FATIGUE [None]
  - FEELING JITTERY [None]
  - GASTROOESOPHAGEAL REFLUX DISEASE [None]
  - HEADACHE [None]
  - INJECTION SITE HAEMORRHAGE [None]
  - INJECTION SITE PAIN [None]
  - NAUSEA [None]
  - NERVOUSNESS [None]
  - PARAESTHESIA [None]
  - VISION BLURRED [None]
